FAERS Safety Report 8853723 (Version 6)
Quarter: 2013Q4

REPORT INFORMATION
  Report Type: Spontaneous
  Country: US (occurrence: US)
  Receive Date: 20121022
  Receipt Date: 20131203
  Transmission Date: 20140711
  Serious: Yes (Hospitalization, Other)
  Sender: FDA-Public Use
  Company Number: US-009507513-1210USA005104

PATIENT
  Sex: Female

DRUGS (2)
  1. FOSAMAX [Suspect]
     Indication: OSTEOPOROSIS
     Dosage: 70 MG, QW
     Route: 048
     Dates: start: 2002, end: 200909
  2. VITAMINS (UNSPECIFIED) [Concomitant]
     Dosage: 1 DF, QD
     Dates: start: 1980

REACTIONS (18)
  - Open reduction of fracture [Unknown]
  - Open reduction of fracture [Unknown]
  - Rotator cuff repair [Unknown]
  - Surgery [Unknown]
  - Basal cell carcinoma [Unknown]
  - Femur fracture [Unknown]
  - Femur fracture [Unknown]
  - Bursitis [Unknown]
  - Spondylolisthesis [Unknown]
  - Intervertebral disc degeneration [Unknown]
  - Osteopenia [Unknown]
  - Tendonitis [Unknown]
  - Bursitis [Unknown]
  - Resting tremor [Unknown]
  - Haemoglobin decreased [Unknown]
  - Cataract operation [Unknown]
  - Retinal disorder [Unknown]
  - Hypertension [Unknown]
